FAERS Safety Report 19434378 (Version 1)
Quarter: 2021Q2

REPORT INFORMATION
  Report Type: Spontaneous
  Country: US (occurrence: US)
  Receive Date: 20210618
  Receipt Date: 20210618
  Transmission Date: 20210717
  Serious: Yes (Other)
  Sender: FDA-Public Use
  Company Number: US-ORGANON-1907USA010756

PATIENT
  Sex: Female

DRUGS (2)
  1. NEXPLANON [Suspect]
     Active Substance: ETONOGESTREL
     Indication: CONTRACEPTION
     Dosage: 1 DOSAGE FORM (68 MG), ONCE
     Route: 059
     Dates: start: 20180202, end: 20190213
  2. NEXPLANON [Suspect]
     Active Substance: ETONOGESTREL
     Dosage: 1 DOSAGE FORM (68 MG), ONCE
     Route: 059
     Dates: start: 20190725

REACTIONS (2)
  - Dysmenorrhoea [Unknown]
  - Surgery [Unknown]

NARRATIVE: CASE EVENT DATE: 2019
